FAERS Safety Report 25240938 (Version 1)
Quarter: 2025Q2

REPORT INFORMATION
  Report Type: Spontaneous
  Country: US (occurrence: US)
  Receive Date: 20250425
  Receipt Date: 20250425
  Transmission Date: 20250717
  Serious: Yes (Other)
  Sender: Alora Pharma
  Company Number: US-ACELLA PHARMACEUTICALS, LLC-2025ALO02160

PATIENT
  Age: 53 Year
  Sex: Female

DRUGS (4)
  1. NP THYROID [Suspect]
     Active Substance: LEVOTHYROXINE\LIOTHYRONINE
     Dosage: 60 MG, 1X/DAY (TAKEN IN CONJUNCTION WITH A 15 MG TABLET [TOTAL DOSE: 75 MG])
  2. NP THYROID [Suspect]
     Active Substance: LEVOTHYROXINE\LIOTHYRONINE
     Dosage: 60 MG, 1X/DAY (TAKEN IN CONJUNCTION WITH TWO 15 MG TABLET [TOTAL DOSE: 90 MG])
  3. NP THYROID [Suspect]
     Active Substance: LEVOTHYROXINE\LIOTHYRONINE
     Dosage: 15 MG, 1X/DAY (TAKEN IN CONJUNCTION WITH 60 MG TABLET [TOTAL DOSE: 75 MG])
  4. NP THYROID [Suspect]
     Active Substance: LEVOTHYROXINE\LIOTHYRONINE
     Dosage: 15 MG, 2X/DAY (TAKEN IN CONJUNCTION WITH 60 MG TABLET [TOTAL DOSE: 90 MG])

REACTIONS (1)
  - Breast cancer [Unknown]

NARRATIVE: CASE EVENT DATE: 20250101
